FAERS Safety Report 6074353-5 (Version None)
Quarter: 2009Q1

REPORT INFORMATION
  Report Type: 
  Country: None (occurrence: None)
  Receive Date: 20090211
  Receipt Date: 20090209
  Transmission Date: 20090719
  Serious: Yes (Hospitalization)
  Sender: FDA-Public Use
  Company Number: JP-B.I. PHARMACEUTICALS,INC./RIDGEFIELD-2009-BP-00813NB

PATIENT
  Sex: Male
  Weight: 61 kg

DRUGS (10)
  1. MICARDIS [Suspect]
     Indication: HYPERTENSION
     Dosage: 40MG
     Route: 048
     Dates: start: 20080731
  2. GENINAX [Suspect]
     Indication: PNEUMONIA ASPIRATION
     Dosage: 200MG
     Route: 048
     Dates: start: 20080717, end: 20090110
  3. MUCODYNE [Concomitant]
     Indication: PNEUMONIA ASPIRATION
     Dosage: 1500MG
     Route: 048
     Dates: start: 20080717
  4. MELBIN [Concomitant]
     Indication: DIABETES MELLITUS
     Dosage: 750MG
     Route: 048
     Dates: start: 20080731
  5. MUCOSTA [Concomitant]
     Indication: PNEUMONIA ASPIRATION
     Dosage: 300MG
     Route: 048
     Dates: start: 20080711
  6. SEIBULE [Concomitant]
     Indication: DIABETES MELLITUS
     Dosage: 225MG
     Route: 048
     Dates: start: 20080731
  7. ZESULAN [Concomitant]
     Indication: PNEUMONIA ASPIRATION
     Dosage: 6MG
     Route: 048
     Dates: start: 20080821
  8. ACTOS [Concomitant]
     Indication: DIABETES MELLITUS
     Dosage: 30MG
     Route: 048
     Dates: start: 20080731
  9. TANATRIL [Concomitant]
     Indication: PNEUMONIA ASPIRATION
     Dosage: 5MG
     Route: 048
     Dates: start: 20081225
  10. SYMMETREL [Concomitant]
     Indication: CEREBRAL INFARCTION
     Dosage: 50MG
     Route: 048
     Dates: start: 20080828

REACTIONS (1)
  - VOLVULUS [None]
